FAERS Safety Report 18360005 (Version 1)
Quarter: 2020Q4

REPORT INFORMATION
  Report Type: Spontaneous
  Country: US (occurrence: US)
  Receive Date: 20201008
  Receipt Date: 20201008
  Transmission Date: 20210114
  Serious: Yes (Hospitalization)
  Sender: FDA-Public Use
  Company Number: None

PATIENT
  Age: 85 Year
  Sex: Female

DRUGS (17)
  1. UCERS AER [Concomitant]
  2. MESALAMINE. [Concomitant]
     Active Substance: MESALAMINE
  3. CEPHALEXIN. [Concomitant]
     Active Substance: CEPHALEXIN
  4. FORTEO [Suspect]
     Active Substance: TERIPARATIDE
     Indication: SENILE OSTEOPOROSIS
     Dosage: ?          OTHER STRENGTH:600MCG/2.4ML;?
     Route: 058
     Dates: start: 201811
  5. OMEPRAZOLE. [Concomitant]
     Active Substance: OMEPRAZOLE
  6. PREDNISONE. [Concomitant]
     Active Substance: PREDNISONE
  7. LOSARTAN POT [Concomitant]
     Active Substance: LOSARTAN POTASSIUM
  8. METOPROL SUC [Concomitant]
  9. DIAZEPAM. [Concomitant]
     Active Substance: DIAZEPAM
  10. LOVASTATIN. [Concomitant]
     Active Substance: LOVASTATIN
  11. NITROGLYCERN SUB [Concomitant]
  12. SMZ/ TMP DS [Concomitant]
     Active Substance: SULFAMETHOXAZOLE\TRIMETHOPRIM
  13. OXYCODONE AND ACETAMINOPHEN [Concomitant]
     Active Substance: ACETAMINOPHEN\OXYCODONE HYDROCHLORIDE
  14. BUDESONIDE. [Concomitant]
     Active Substance: BUDESONIDE
  15. GABEPENTIN [Concomitant]
     Active Substance: GABAPENTIN
  16. POT CHLORIDE [Concomitant]
     Active Substance: POTASSIUM CHLORIDE
  17. SUPREP BOWEL SOT [Concomitant]

REACTIONS (1)
  - Chest pain [None]

NARRATIVE: CASE EVENT DATE: 20201002
